FAERS Safety Report 10525193 (Version 1)
Quarter: 2014Q4

REPORT INFORMATION
  Report Type: Spontaneous
  Country: US (occurrence: None)
  Receive Date: 20141015
  Receipt Date: 20141015
  Transmission Date: 20150528
  Serious: No
  Sender: FDA-Public Use
  Company Number: None

PATIENT
  Age: 64 Year
  Sex: Female
  Weight: 89.81 kg

DRUGS (1)
  1. XOLAIR [Suspect]
     Active Substance: OMALIZUMAB
     Indication: URTICARIA
     Dosage: GIVEN INTO/UNDER THE SKIN
     Dates: start: 20140730, end: 20140924

REACTIONS (8)
  - Chest pain [None]
  - Product quality issue [None]
  - Pain in extremity [None]
  - Disturbance in attention [None]
  - Chest discomfort [None]
  - Nausea [None]
  - Back pain [None]
  - Neck pain [None]

NARRATIVE: CASE EVENT DATE: 20140925
